FAERS Safety Report 4901360-5 (Version None)
Quarter: 2006Q1

REPORT INFORMATION
  Report Type: 
  Country: None (occurrence: None)
  Receive Date: 20060206
  Receipt Date: 20060123
  Transmission Date: 20060701
  Serious: Yes (Hospitalization)
  Sender: FDA-Public Use
  Company Number: GBWYE330224JAN06

PATIENT
  Sex: Female
  Weight: 44 kg

DRUGS (7)
  1. ENBREL [Suspect]
     Indication: RHEUMATOID ARTHRITIS
     Route: 058
     Dates: start: 20050307, end: 20051028
  2. NABUMETONE [Concomitant]
     Dosage: UNKNOWN
     Route: 048
     Dates: start: 19960101
  3. LOSEC [Concomitant]
     Dosage: 20MG DAILY
     Dates: start: 20010901
  4. FOLIC ACID [Concomitant]
     Dosage: 5MG WEEKLY
     Dates: start: 20031001, end: 20051001
  5. METHOTREXATE [Concomitant]
     Dates: start: 20031001, end: 20051001
  6. ACETAMINOPHEN W/ CODEINE [Concomitant]
  7. SULFASALAZINE [Concomitant]

REACTIONS (2)
  - GLOMERULONEPHRITIS RAPIDLY PROGRESSIVE [None]
  - RENAL FAILURE ACUTE [None]
